FAERS Safety Report 4447936-3 (Version None)
Quarter: 2004Q3

REPORT INFORMATION
  Report Type: 
  Country: None (occurrence: None)
  Receive Date: 20040819
  Receipt Date: 20040116
  Transmission Date: 20050211
  Serious: Yes (Hospitalization, Other)
  Sender: FDA-Public Use
  Company Number: 2004194452US

PATIENT
  Sex: Female
  Weight: 86.2 kg

DRUGS (1)
  1. DELTASONE [Suspect]
     Dosage: UNK
     Route: 065

REACTIONS (1)
  - BLOOD GLUCOSE INCREASED [None]
